FAERS Safety Report 6070698-3 (Version None)
Quarter: 2009Q1

REPORT INFORMATION
  Report Type: 
  Country: None (occurrence: None)
  Receive Date: 20090209
  Receipt Date: 20090127
  Transmission Date: 20090719
  Serious: Yes (Life-Threatening, Hospitalization)
  Sender: FDA-Public Use
  Company Number: FR-ROCHE-610907

PATIENT
  Sex: Female

DRUGS (15)
  1. PEGASYS [Suspect]
     Route: 058
     Dates: start: 20070301, end: 20070515
  2. EFFEXOR [Suspect]
     Indication: MAJOR DEPRESSION
     Route: 048
  3. REBETOL [Suspect]
     Route: 048
     Dates: start: 20070301, end: 20070515
  4. CORTANCYL [Concomitant]
     Indication: VASCULITIS
     Route: 048
     Dates: start: 20061001
  5. NEUPOGEN [Concomitant]
     Indication: NEUTROPENIA
     Dosage: DOSAGE REGIMEN : 30KIU 2X/W
     Route: 058
     Dates: start: 20070301, end: 20070515
  6. ARANESP [Concomitant]
     Route: 058
     Dates: start: 20070301, end: 20070515
  7. MANTADIX [Concomitant]
     Route: 048
     Dates: start: 20070301, end: 20070515
  8. CALCIT [Concomitant]
     Dosage: DRUG: CALCIT VITAMINE D3 1000MG/880IU
     Route: 048
  9. ACTONEL [Concomitant]
     Indication: OSTEOPOROSIS
     Route: 048
     Dates: end: 20070701
  10. TRIATEC [Concomitant]
     Route: 048
  11. ATARAX [Concomitant]
     Indication: ANXIETY
     Route: 048
  12. BUSPAR [Concomitant]
     Indication: ANXIETY
     Route: 048
  13. RIVOTRIL [Concomitant]
     Route: 048
     Dates: start: 20070301
  14. FOSAMAX [Concomitant]
     Indication: OSTEOPOROSIS
     Route: 048
     Dates: start: 20070601
  15. DAONIL [Concomitant]
     Route: 048
     Dates: start: 20070510

REACTIONS (2)
  - CONFUSIONAL STATE [None]
  - CONVULSION [None]
